FAERS Safety Report 12545420 (Version 1)
Quarter: 2016Q3

REPORT INFORMATION
  Report Type: Spontaneous
  Country: US (occurrence: US)
  Receive Date: 20160711
  Receipt Date: 20160711
  Transmission Date: 20161109
  Serious: No
  Sender: FDA-Public Use
  Company Number: US-ASTRAZENECA-2016SE50979

PATIENT
  Sex: Female

DRUGS (1)
  1. BYDUREON [Suspect]
     Active Substance: EXENATIDE
     Dosage: UNKNOWN
     Route: 065

REACTIONS (5)
  - Injection site erythema [Recovered/Resolved]
  - Injection site warmth [Unknown]
  - Injection site nodule [Unknown]
  - Injection site swelling [Recovered/Resolved]
  - Intentional product misuse [Unknown]
